FAERS Safety Report 9709638 (Version 2)
Quarter: 2013Q4

REPORT INFORMATION
  Report Type: Spontaneous
  Country: MX (occurrence: MX)
  Receive Date: 20131126
  Receipt Date: 20131209
  Transmission Date: 20140711
  Serious: No
  Sender: FDA-Public Use
  Company Number: MX-AMGEN-MEXSP2013083205

PATIENT
  Age: 56 Year
  Sex: Female

DRUGS (5)
  1. FILGRASTIM [Suspect]
     Indication: NEUTROPENIA
     Dosage: 300 MG, 1 IN 1 D (5 DOSES)
     Route: 065
  2. FILGRASTIM [Suspect]
     Indication: FEBRILE NEUTROPENIA
  3. IRINOTECAN HCL [Concomitant]
     Indication: COLORECTAL CANCER METASTATIC
     Dosage: UNK
  4. 5 FLUOROURACIL                     /00098801/ [Concomitant]
     Indication: COLORECTAL CANCER METASTATIC
     Dosage: UNK, SOLUTION
     Route: 040
  5. FOLINIC ACID [Concomitant]
     Indication: COLORECTAL CANCER METASTATIC
     Dosage: UNK

REACTIONS (1)
  - Disease progression [Unknown]
